FAERS Safety Report 21299143 (Version 1)
Quarter: 2022Q3

REPORT INFORMATION
  Report Type: Spontaneous
  Country: CN (occurrence: CN)
  Receive Date: 20220906
  Receipt Date: 20220906
  Transmission Date: 20221026
  Serious: Yes (Hospitalization, Other)
  Sender: FDA-Public Use
  Company Number: None

PATIENT
  Age: 51 Year
  Sex: Female
  Weight: 48.6 kg

DRUGS (4)
  1. CYCLOPHOSPHAMIDE [Suspect]
     Active Substance: CYCLOPHOSPHAMIDE
     Indication: Breast cancer female
     Dosage: 700 MG, QD (DILUTED WITH 0.9% SODIUM CHLORIDE INJECTION 500 ML, ONCE)
     Route: 041
     Dates: start: 20220805, end: 20220805
  2. SODIUM CHLORIDE [Suspect]
     Active Substance: SODIUM CHLORIDE
     Indication: Medication dilution
     Dosage: 500 ML, QD (DILUTED WITH CYCLOPHOSPHAMIDE FOR INJECTION 700 MG, ONCE)
     Route: 041
     Dates: start: 20220805, end: 20220805
  3. DEXTROSE MONOHYDRATE [Suspect]
     Active Substance: DEXTROSE MONOHYDRATE
     Indication: Medication dilution
     Dosage: 500 ML, QD (DILUTED WITH PIRARUBICIN HYDROCHLORIDE FOR INJECTION 60 MG, ONCE)
     Route: 041
     Dates: start: 20220805, end: 20220805
  4. PIRARUBICIN HYDROCHLORIDE [Suspect]
     Active Substance: PIRARUBICIN HYDROCHLORIDE
     Indication: Breast cancer female
     Dosage: 60 MG, QD (DILUTED WITH GLUCOSE INJECTION 500 ML, ONCE)
     Route: 041
     Dates: start: 20220805, end: 20220805

REACTIONS (1)
  - Myelosuppression [Recovering/Resolving]

NARRATIVE: CASE EVENT DATE: 20220815
